FAERS Safety Report 5566328-7 (Version None)
Quarter: 2007Q4

REPORT INFORMATION
  Report Type: 
  Country: None (occurrence: None)
  Receive Date: 20071214
  Receipt Date: 20071120
  Transmission Date: 20080405
  Serious: Yes (Other)
  Sender: FDA-Public Use
  Company Number: 2007S1008927

PATIENT
  Sex: Female

DRUGS (1)
  1. E-Z PREP [Suspect]
     Dosage: X1; PO
     Route: 048
     Dates: start: 20070723, end: 20070723

REACTIONS (1)
  - RENAL FAILURE ACUTE [None]
